FAERS Safety Report 24837393 (Version 3)
Quarter: 2025Q2

REPORT INFORMATION
  Report Type: Spontaneous
  Country: DE (occurrence: DE)
  Receive Date: 20250113
  Receipt Date: 20250512
  Transmission Date: 20250717
  Serious: Yes (Hospitalization, Other)
  Sender: PFIZER
  Company Number: DE-AMGEN-DEUSP2024253286

PATIENT
  Age: 76 Year
  Sex: Female
  Weight: 66 kg

DRUGS (13)
  1. PALBOCICLIB [Suspect]
     Active Substance: PALBOCICLIB
     Indication: Breast cancer
     Route: 048
     Dates: start: 20230918
  2. XGEVA [Suspect]
     Active Substance: DENOSUMAB
     Indication: Prophylaxis
     Route: 048
     Dates: start: 20230918, end: 20240903
  3. XGEVA [Suspect]
     Active Substance: DENOSUMAB
     Route: 065
  4. LETROZOLE [Suspect]
     Active Substance: LETROZOLE
     Indication: Breast cancer
     Dosage: 2.5 MILLIGRAM, QD
     Route: 048
     Dates: start: 20230918
  5. OXYCODONE [Concomitant]
     Active Substance: OXYCODONE
  6. NALOXONE HYDROCHLORIDE/OXYCODONE [Concomitant]
  7. FOSTER [Concomitant]
     Active Substance: BECLOMETHASONE\FORMOTEROL
  8. ALBUTEROL [Concomitant]
     Active Substance: ALBUTEROL
  9. PANTOPRAZOLE [Concomitant]
     Active Substance: PANTOPRAZOLE
  10. DOMPERIDONE [Concomitant]
     Active Substance: DOMPERIDONE
  11. METAMIZOLE MAGNESIUM [Concomitant]
     Active Substance: METAMIZOLE MAGNESIUM
  12. PREGABALIN [Concomitant]
     Active Substance: PREGABALIN
     Dates: start: 2023
  13. ETORICOXIB [Concomitant]
     Active Substance: ETORICOXIB
     Dates: start: 20230831

REACTIONS (1)
  - Osteonecrosis of jaw [Recovered/Resolved]

NARRATIVE: CASE EVENT DATE: 20241024
